FAERS Safety Report 6384972-4 (Version None)
Quarter: 2009Q4

REPORT INFORMATION
  Report Type: 
  Country: None (occurrence: None)
  Receive Date: 20091002
  Receipt Date: 20090928
  Transmission Date: 20100525
  Serious: Yes (Other)
  Sender: FDA-Public Use
  Company Number: GB-TYCO HEALTHCARE/MALLINCKRODT-T200901801

PATIENT

DRUGS (4)
  1. OPTIRAY 350 [Suspect]
     Indication: UROGRAM
     Dosage: UNK
     Route: 042
     Dates: start: 20090814, end: 20090814
  2. ENOXAPARIN [Concomitant]
     Dosage: 90 MG, QD
     Dates: start: 20090630
  3. LEVETIRACETAM [Concomitant]
     Dosage: 250 MG, BID
  4. LEVOTHYROXINE SODIUM [Concomitant]
     Indication: HYPOTHYROIDISM
     Dosage: 50 MG, QD

REACTIONS (1)
  - RASH [None]
